FAERS Safety Report 25031962 (Version 1)
Quarter: 2025Q1

REPORT INFORMATION
  Report Type: Spontaneous
  Country: US (occurrence: US)
  Receive Date: 20250303
  Receipt Date: 20250303
  Transmission Date: 20250408
  Serious: No
  Sender: BAYER HEALTHCARE LLC
  Company Number: US-BAYER-2025A026836

PATIENT
  Age: 67 Year
  Sex: Female

DRUGS (1)
  1. MIRALAX [Suspect]
     Active Substance: POLYETHYLENE GLYCOL 3350
     Indication: Bowel movement irregularity
     Route: 048
     Dates: start: 202501, end: 20250214

REACTIONS (4)
  - Cystic fibrosis lung [None]
  - Increased viscosity of upper respiratory secretion [None]
  - Blood creatinine increased [None]
  - Incorrect dose administered [None]
